FAERS Safety Report 7989923-4 (Version None)
Quarter: 2011Q4

REPORT INFORMATION
  Report Type: 
  Country: None (occurrence: None)
  Receive Date: 20111219
  Receipt Date: 20110624
  Transmission Date: 20120403
  Serious: No
  Sender: FDA-Public Use
  Company Number: US-ASTRAZENECA-2011SE38642

PATIENT
  Sex: Male

DRUGS (1)
  1. CRESTOR [Suspect]
     Route: 048
     Dates: start: 20110401, end: 20110501

REACTIONS (3)
  - BACK PAIN [None]
  - MUSCLE SPASMS [None]
  - LOSS OF LIBIDO [None]
